FAERS Safety Report 10384481 (Version 2)
Quarter: 2014Q3

REPORT INFORMATION
  Report Type: Spontaneous
  Country: FR (occurrence: FR)
  Receive Date: 20140814
  Receipt Date: 20140821
  Transmission Date: 20150326
  Serious: Yes (Death, Hospitalization)
  Sender: FDA-Public Use
  Company Number: PHHY2014FR097126

PATIENT
  Age: 19 Year
  Sex: Male

DRUGS (6)
  1. AMOXICILLIN. [Suspect]
     Active Substance: AMOXICILLIN
     Indication: H1N1 INFLUENZA
  2. ACICLOVIR [Suspect]
     Active Substance: ACYCLOVIR
     Indication: COMA
  3. GENTALLINE [Suspect]
     Active Substance: GENTAMICIN SULFATE
     Indication: H1N1 INFLUENZA
  4. PARACETAMOL [Suspect]
     Active Substance: ACETAMINOPHEN
     Indication: HYPERTHERMIA
  5. ACETYLSALICYLIC ACID [Suspect]
     Active Substance: ASPIRIN
     Indication: HYPERTHERMIA
  6. CEFOTAXIME [Suspect]
     Active Substance: CEFOTAXIME\CEFOTAXIME SODIUM
     Indication: H1N1 INFLUENZA

REACTIONS (20)
  - Mydriasis [Unknown]
  - CSF glucose increased [Unknown]
  - Brain death [Fatal]
  - Decerebrate posture [Unknown]
  - Reye^s syndrome [Unknown]
  - Pyrexia [Unknown]
  - Coagulopathy [Unknown]
  - CSF protein increased [Unknown]
  - Encephalitis [Unknown]
  - Brain oedema [Unknown]
  - Bundle branch block right [Unknown]
  - Intracranial pressure increased [Unknown]
  - Hepatitis [Unknown]
  - Cardiac murmur [Unknown]
  - Lymphadenopathy [Unknown]
  - Generalised tonic-clonic seizure [Unknown]
  - Altered state of consciousness [Unknown]
  - H1N1 influenza [Unknown]
  - Drug ineffective [Unknown]
  - Coma [Unknown]
